FAERS Safety Report 6660486-9 (Version None)
Quarter: 2010Q1

REPORT INFORMATION
  Report Type: 
  Country: None (occurrence: None)
  Receive Date: 20100331
  Receipt Date: 20100318
  Transmission Date: 20100710
  Serious: Yes (Other)
  Sender: FDA-Public Use
  Company Number: PHHY2010BR16850

PATIENT
  Age: 75 Year
  Sex: Male

DRUGS (6)
  1. DIOVAN [Suspect]
     Indication: HYPERTENSION
     Dosage: 1 TABLET (320 MG) IN THE MORNING
     Route: 048
     Dates: start: 20060101, end: 20100301
  2. DIOVAN [Suspect]
     Dosage: HALF TABLET TWICE DAILY, MORNING AND NIGHT
     Route: 048
     Dates: start: 20100301
  3. ADALAT [Concomitant]
     Indication: HYPERTENSION
     Dosage: 1 TABLET AT NIGHT
     Route: 048
     Dates: start: 20060101
  4. ADALAT [Concomitant]
     Dosage: HALF TABLET AT NIGHT
     Route: 048
     Dates: end: 20100217
  5. CAPTOPRIL [Concomitant]
     Indication: HYPERTENSION
     Dosage: 1 DF, PRN
     Route: 048
     Dates: start: 20060101
  6. UNOPROST [Concomitant]
     Indication: PROSTATIC DISORDER
     Dosage: 1 TABLET DAILY
     Route: 048
     Dates: start: 20090901

REACTIONS (5)
  - BLOOD PRESSURE INADEQUATELY CONTROLLED [None]
  - BLOOD PRESSURE INCREASED [None]
  - MEMORY IMPAIRMENT [None]
  - STRESS [None]
  - WRONG TECHNIQUE IN DRUG USAGE PROCESS [None]
